FAERS Safety Report 6541890-6 (Version None)
Quarter: 2010Q1

REPORT INFORMATION
  Report Type: 
  Country: None (occurrence: None)
  Receive Date: 20100119
  Receipt Date: 20100113
  Transmission Date: 20100710
  Serious: Yes (Life-Threatening, Hospitalization, Disabling, Other)
  Sender: FDA-Public Use
  Company Number: US-CELGENEUS-163-21880-09111932

PATIENT
  Sex: Male

DRUGS (32)
  1. REVLIMID [Suspect]
     Indication: MYELOPROLIFERATIVE DISORDER
     Route: 048
     Dates: start: 20090501
  2. REVLIMID [Suspect]
  3. NITROGLYCERIN [Concomitant]
     Indication: DRUG USE FOR UNKNOWN INDICATION
     Route: 051
  4. NITROGLYCERIN [Concomitant]
     Route: 061
  5. ACTIVASE [Concomitant]
     Indication: DRUG USE FOR UNKNOWN INDICATION
     Route: 065
  6. HEPARIN [Concomitant]
     Indication: DRUG USE FOR UNKNOWN INDICATION
     Dosage: 500 UNITS
     Route: 065
  7. FENTANYL [Concomitant]
     Indication: PAIN
     Route: 051
  8. FENTANYL [Concomitant]
     Route: 048
     Dates: start: 20091208, end: 20091230
  9. COUMADIN [Concomitant]
     Indication: ANTICOAGULANT THERAPY
     Route: 065
     Dates: start: 20091104, end: 20091230
  10. ASPIRIN [Concomitant]
     Indication: ANTICOAGULANT THERAPY
     Route: 048
     Dates: start: 20091104, end: 20091230
  11. ARGATROBAN [Concomitant]
     Indication: DRUG USE FOR UNKNOWN INDICATION
     Route: 051
  12. LOVENOX [Concomitant]
     Indication: DRUG USE FOR UNKNOWN INDICATION
     Route: 058
  13. DILAUDID [Concomitant]
     Indication: DRUG USE FOR UNKNOWN INDICATION
     Route: 065
  14. MC CONTIN [Concomitant]
     Indication: DRUG USE FOR UNKNOWN INDICATION
     Route: 048
  15. MC CONTIN [Concomitant]
     Route: 065
     Dates: start: 20091104, end: 20091230
  16. ROXANOL [Concomitant]
     Indication: PAIN
     Dosage: 10/30MG
     Route: 048
  17. VICODIN [Concomitant]
     Indication: PAIN
     Dosage: 5/500
     Route: 048
     Dates: start: 20091208, end: 20091230
  18. INTEGRILIN [Concomitant]
     Indication: DRUG USE FOR UNKNOWN INDICATION
  19. FERROUS SULFATE TAB [Concomitant]
     Indication: DRUG USE FOR UNKNOWN INDICATION
     Route: 048
     Dates: start: 20091104, end: 20091230
  20. ADVAIR DISKUS 100/50 [Concomitant]
     Indication: DRUG USE FOR UNKNOWN INDICATION
     Dosage: 100/50 ONE PUFF
     Route: 055
  21. ADVAIR DISKUS 100/50 [Concomitant]
     Dosage: 25/5
     Route: 055
     Dates: start: 20091104, end: 20091230
  22. DILTIAZEM CD [Concomitant]
     Indication: DRUG USE FOR UNKNOWN INDICATION
     Route: 048
     Dates: start: 20091208, end: 20091230
  23. COLACE [Concomitant]
     Indication: DRUG USE FOR UNKNOWN INDICATION
     Route: 048
  24. TAMSULOSIN HCL [Concomitant]
     Indication: DRUG USE FOR UNKNOWN INDICATION
     Route: 048
  25. DIGOXIN [Concomitant]
     Indication: DRUG USE FOR UNKNOWN INDICATION
     Route: 048
     Dates: start: 20091104, end: 20091230
  26. PEPCID [Concomitant]
     Indication: DRUG USE FOR UNKNOWN INDICATION
     Route: 048
  27. CLOPIDOGREL [Concomitant]
     Indication: DRUG USE FOR UNKNOWN INDICATION
     Route: 048
  28. SPIRIVA [Concomitant]
     Indication: DRUG USE FOR UNKNOWN INDICATION
     Route: 055
     Dates: start: 20091104, end: 20091230
  29. FLECAINIDE [Concomitant]
     Indication: DRUG USE FOR UNKNOWN INDICATION
     Route: 048
     Dates: start: 20091104, end: 20091230
  30. ALLOPURINOL [Concomitant]
     Indication: DRUG USE FOR UNKNOWN INDICATION
     Route: 048
     Dates: start: 20091104, end: 20091230
  31. FLOMAX [Concomitant]
     Indication: DRUG USE FOR UNKNOWN INDICATION
     Route: 065
     Dates: start: 20091104, end: 20091230
  32. PLAVIX [Concomitant]
     Indication: DRUG USE FOR UNKNOWN INDICATION
     Route: 065
     Dates: start: 20091104, end: 20091230

REACTIONS (2)
  - ARTERIAL THROMBOSIS LIMB [None]
  - POST PROCEDURAL HAEMATOMA [None]
